FAERS Safety Report 21550075 (Version 2)
Quarter: 2022Q4

REPORT INFORMATION
  Report Type: Report from Study
  Country: US (occurrence: US)
  Receive Date: 20221103
  Receipt Date: 20221130
  Transmission Date: 20230112
  Serious: Yes (Death, Hospitalization, Other)
  Sender: FDA-Public Use
  Company Number: US-AQUESTIVE THERAPEUTICS, INC-2022AQU00105

PATIENT
  Sex: Male

DRUGS (2)
  1. EXSERVAN [Suspect]
     Active Substance: RILUZOLE
     Dosage: UNK
     Dates: start: 202206, end: 202207
  2. EXSERVAN [Suspect]
     Active Substance: RILUZOLE
     Dosage: UNK
     Dates: start: 202209

REACTIONS (8)
  - Death [Fatal]
  - Pneumonia [Unknown]
  - Gastrointestinal tube insertion [Unknown]
  - Dyspnoea [Unknown]
  - Amyotrophic lateral sclerosis [Not Recovered/Not Resolved]
  - Tracheostomy [Not Recovered/Not Resolved]
  - Sinusitis [Unknown]
  - Hepatic enzyme increased [Recovered/Resolved]

NARRATIVE: CASE EVENT DATE: 20220101
